FAERS Safety Report 8429614-9 (Version None)
Quarter: 2012Q2

REPORT INFORMATION
  Report Type: 
  Country: None (occurrence: None)
  Receive Date: 20120604
  Receipt Date: 20120523
  Transmission Date: 20120825
  Serious: Yes (Death, Hospitalization)
  Sender: FDA-Public Use
  Company Number: CA-2012-2230

PATIENT
  Age: 61 Year
  Sex: Female

DRUGS (14)
  1. RIVASA [Concomitant]
  2. COLACE [Concomitant]
  3. CETUXIMAB (CETUXIMAB, CETUXIMAB) [Suspect]
     Indication: NON-SMALL CELL LUNG CANCER
     Dosage: 60 MG/M2 IV
     Route: 042
     Dates: start: 20111102
  4. ATENOLOL [Concomitant]
  5. SENOKOT [Concomitant]
  6. POTASSIUM ACETATE [Concomitant]
  7. PROCHLORPERAZINE [Concomitant]
  8. VINORELBINE TARTRATE [Suspect]
     Indication: NON-SMALL CELL LUNG CANCER
     Dosage: 25 MG/M2 IV
     Route: 042
     Dates: start: 20111102
  9. NAPROSYN [Concomitant]
  10. CETUXIMAB (CETUXIMAB, CETUXIMAB) [Suspect]
     Indication: NON-SMALL CELL LUNG CANCER
     Dosage: 250 MG/M2 IV
     Route: 042
     Dates: start: 20111102
  11. AMLODIPINE [Concomitant]
  12. THIAZID-COMP (HYDROCHLOROTHIAZIDE, TRIAMTERENE) [Concomitant]
  13. DILAUDID [Concomitant]
  14. OXAZEPAM [Concomitant]

REACTIONS (3)
  - PNEUMONIA [None]
  - BACK PAIN [None]
  - METASTASES TO SPINE [None]
